FAERS Safety Report 4991238-3 (Version None)
Quarter: 2006Q2

REPORT INFORMATION
  Report Type: 
  Country: None (occurrence: None)
  Receive Date: 20060428
  Receipt Date: 20060412
  Transmission Date: 20061013
  Serious: Yes (Hospitalization, Other)
  Sender: FDA-Public Use
  Company Number: US200603007121

PATIENT
  Age: 84 Year
  Sex: Female
  Weight: 57.6 kg

DRUGS (5)
  1. FORTEO [Suspect]
     Indication: OSTEOPOROSIS
     Dosage: 20 UG, DAILY (1/D)
  2. FORTEO PEN (FORTEO PEN) PEN, DISPOSABLE [Concomitant]
  3. PROTONIX [Concomitant]
  4. NIFEREX (POLYSACCHARIDE-IRON COMPLEX) [Concomitant]
  5. METOPROLOL SUCCINATE [Concomitant]

REACTIONS (6)
  - BLOOD PRESSURE ABNORMAL [None]
  - GASTROINTESTINAL ULCER [None]
  - HAEMORRHAGE [None]
  - HIATUS HERNIA [None]
  - OESOPHAGEAL DISORDER [None]
  - PHARMACEUTICAL PRODUCT COMPLAINT [None]
